FAERS Safety Report 8259888-9 (Version None)
Quarter: 2012Q2

REPORT INFORMATION
  Report Type: 
  Country: None (occurrence: None)
  Receive Date: 20120404
  Receipt Date: 20120315
  Transmission Date: 20120825
  Serious: Yes (Hospitalization)
  Sender: FDA-Public Use
  Company Number: JP-GLAXOSMITHKLINE-B0789001A

PATIENT
  Sex: Male
  Weight: 51 kg

DRUGS (6)
  1. PLAVIX [Concomitant]
     Dosage: 25MG PER DAY
     Route: 048
  2. CELESTAMINE TAB [Concomitant]
     Indication: PRURITUS
     Dosage: 1IUAX PER DAY
     Route: 048
  3. VALTREX [Suspect]
     Indication: HERPES ZOSTER
     Dosage: 3000MG PER DAY
     Route: 048
     Dates: start: 20120313, end: 20120315
  4. CARVEDILOL [Concomitant]
     Indication: HYPERTENSION
     Dosage: 10MG PER DAY
     Route: 048
  5. VIDARABINE [Concomitant]
     Indication: HERPES ZOSTER
     Route: 061
     Dates: start: 20120313, end: 20120315
  6. TELMISARTAN/HYDROCHLOROTHIAZIDE [Concomitant]
     Indication: HYPERTENSION
     Dosage: 1IUAX PER DAY
     Route: 048

REACTIONS (20)
  - CEREBRAL ATROPHY [None]
  - BLOOD CREATININE INCREASED [None]
  - TREMOR [None]
  - BLOOD POTASSIUM INCREASED [None]
  - BLOOD LACTATE DEHYDROGENASE INCREASED [None]
  - SKIN EROSION [None]
  - ALANINE AMINOTRANSFERASE INCREASED [None]
  - ENCEPHALOPATHY [None]
  - C-REACTIVE PROTEIN INCREASED [None]
  - BLOOD UREA INCREASED [None]
  - DEPRESSED LEVEL OF CONSCIOUSNESS [None]
  - RENAL IMPAIRMENT [None]
  - MALAISE [None]
  - DYSSTASIA [None]
  - DEHYDRATION [None]
  - DECREASED APPETITE [None]
  - HEPATIC FUNCTION ABNORMAL [None]
  - ASTHENIA [None]
  - RENAL FAILURE CHRONIC [None]
  - ASPARTATE AMINOTRANSFERASE INCREASED [None]
